FAERS Safety Report 8535776-5 (Version None)
Quarter: 2012Q3

REPORT INFORMATION
  Report Type: 
  Country: None (occurrence: None)
  Receive Date: 20120711
  Receipt Date: 20120626
  Transmission Date: 20120928
  Serious: Yes (Hospitalization)
  Sender: FDA-Public Use
  Company Number: CIP11001846

PATIENT
  Age: 66 Year
  Sex: Male

DRUGS (19)
  1. IMURAN [Concomitant]
  2. FUROSEMIDE [Concomitant]
  3. GEMFIBROZIL [Concomitant]
  4. ZOCOR [Concomitant]
  5. ZETIA [Concomitant]
  6. NORVASC [Concomitant]
  7. FOSAMAX [Suspect]
     Dosage: 70 MG ONCE WEEKLY, ORAL
     Route: 048
     Dates: start: 20040512, end: 20040701
  8. SALSALATE (SALSALATE) [Concomitant]
  9. NIACIN [Concomitant]
  10. PREDNISONE TAB [Concomitant]
  11. BIAXIN [Concomitant]
  12. ACTONEL [Suspect]
     Indication: OSTEOPENIA
     Dosage: 35 MG ONCE WEEKLY, ORAL 35 MG ONCE WEEKLY, ORAL 35 MG ONCE WEEKLY, ORAL
     Route: 048
     Dates: start: 20041215, end: 20050601
  13. ACTONEL [Suspect]
     Indication: OSTEOPENIA
     Dosage: 35 MG ONCE WEEKLY, ORAL 35 MG ONCE WEEKLY, ORAL 35 MG ONCE WEEKLY, ORAL
     Route: 048
     Dates: start: 20100623
  14. ACTONEL [Suspect]
     Indication: OSTEOPENIA
     Dosage: 35 MG ONCE WEEKLY, ORAL 35 MG ONCE WEEKLY, ORAL 35 MG ONCE WEEKLY, ORAL
     Route: 048
     Dates: start: 20070101, end: 20091201
  15. PLENDIL [Concomitant]
  16. TICLID [Concomitant]
  17. TENORETIC 100 [Concomitant]
  18. RELAFEN [Concomitant]
  19. VARDENAFIL (VARDENAFIL) [Concomitant]

REACTIONS (21)
  - TENDERNESS [None]
  - TOOTHACHE [None]
  - PROCEDURAL PAIN [None]
  - OSTEONECROSIS OF JAW [None]
  - MASTICATION DISORDER [None]
  - WHITE BLOOD CELL COUNT INCREASED [None]
  - DENTAL CARIES [None]
  - ALPHA HAEMOLYTIC STREPTOCOCCAL INFECTION [None]
  - OESOPHAGEAL PAIN [None]
  - ABDOMINAL DISCOMFORT [None]
  - OSTEOMYELITIS [None]
  - PAIN IN JAW [None]
  - CELLULITIS [None]
  - WOUND DEHISCENCE [None]
  - PURULENT DISCHARGE [None]
  - SWELLING FACE [None]
  - EXCESSIVE GRANULATION TISSUE [None]
  - ABSCESS JAW [None]
  - BONE DENSITY DECREASED [None]
  - POST PROCEDURAL SWELLING [None]
  - GINGIVAL SWELLING [None]
